FAERS Safety Report 7929755-6 (Version None)
Quarter: 2011Q4

REPORT INFORMATION
  Report Type: 
  Country: None (occurrence: None)
  Receive Date: 20111121
  Receipt Date: 20111114
  Transmission Date: 20120403
  Serious: Yes (Other)
  Sender: FDA-Public Use
  Company Number: PHEH2011US009438

PATIENT
  Age: 3 Year
  Sex: Female
  Weight: 14.966 kg

DRUGS (2)
  1. TOBI [Suspect]
     Indication: CYSTIC FIBROSIS
     Dosage: 300 MG, BID
     Dates: start: 20111024
  2. PULMOZYME [Concomitant]

REACTIONS (6)
  - EAR INFECTION [None]
  - PHARYNGITIS [None]
  - PSEUDOMONAS INFECTION [None]
  - UPPER RESPIRATORY TRACT INFECTION [None]
  - RHINITIS [None]
  - EYE INFECTION [None]
